FAERS Safety Report 13704652 (Version 1)
Quarter: 2017Q2

REPORT INFORMATION
  Report Type: Spontaneous
  Country: US (occurrence: US)
  Receive Date: 20170629
  Receipt Date: 20170629
  Transmission Date: 20170830
  Serious: No
  Sender: FDA-Public Use
  Company Number: None

PATIENT
  Age: 67 Year
  Sex: Female
  Weight: 54 kg

DRUGS (13)
  1. SIMVASTATIN. [Concomitant]
     Active Substance: SIMVASTATIN
  2. C-ESTRADIOL [Concomitant]
  3. MULTIVITAMIN [Concomitant]
     Active Substance: VITAMINS
  4. FISH OIL [Concomitant]
     Active Substance: FISH OIL
  5. PROBIOTIC [Concomitant]
     Active Substance: PROBIOTICS NOS
  6. LEVOXYL [Concomitant]
     Active Substance: LEVOTHYROXINE SODIUM
  7. PEPERMENT OIL [Concomitant]
  8. CALCIUM WITH D3 [Concomitant]
  9. ASPIRIN. [Concomitant]
     Active Substance: ASPIRIN
  10. CO-Q10 [Concomitant]
  11. FLEXSEED OIL [Concomitant]
  12. PROLIA [Suspect]
     Active Substance: DENOSUMAB
     Indication: OSTEOPOROSIS
     Dosage: OTHER FREQUENCY:TWO SHOTS A YEAR;?
  13. PROLIA [Concomitant]
     Active Substance: DENOSUMAB

REACTIONS (7)
  - Confusional state [None]
  - Back pain [None]
  - Rash [None]
  - Muscle spasms [None]
  - Arthralgia [None]
  - Irritable bowel syndrome [None]
  - Dizziness [None]
